FAERS Safety Report 4905874-3 (Version None)
Quarter: 2006Q1

REPORT INFORMATION
  Report Type: 
  Country: None (occurrence: None)
  Receive Date: 20060203
  Receipt Date: 20060118
  Transmission Date: 20060701
  Serious: Yes (Hospitalization)
  Sender: FDA-Public Use
  Company Number: 2005BI020499

PATIENT
  Age: 77 Year
  Sex: Female
  Weight: 59.8748 kg

DRUGS (21)
  1. ZEVALIN [Suspect]
     Indication: NON-HODGKIN'S LYMPHOMA
     Dosage: X1; IV
     Route: 042
     Dates: start: 20050901, end: 20050901
  2. ZEVALIN [Suspect]
     Indication: NON-HODGKIN'S LYMPHOMA
     Dosage: 27.5 MCI; X1; IV
     Route: 042
     Dates: start: 20050920, end: 20050920
  3. AMARYL [Concomitant]
  4. AMARYL [Concomitant]
  5. ATROVENT [Concomitant]
  6. LASIX [Concomitant]
  7. LASIX [Concomitant]
  8. PREVACID [Concomitant]
  9. CARTIA XT [Concomitant]
  10. DIGITEK [Concomitant]
  11. WARFARIN [Concomitant]
  12. SOTALOL HCL [Concomitant]
  13. ZYRTEC [Concomitant]
  14. FLOVENT [Concomitant]
  15. LIPITOR [Concomitant]
  16. MIRALAX [Concomitant]
  17. CITRUCEL [Concomitant]
  18. PROCRIT [Concomitant]
  19. NEUPOGEN [Concomitant]
  20. ATROVENT [Concomitant]
  21. POTASSIUM CHLORIDE [Concomitant]

REACTIONS (21)
  - ABDOMINAL HAEMATOMA [None]
  - ABDOMINAL MASS [None]
  - ABDOMINAL PAIN LOWER [None]
  - ABDOMINAL TENDERNESS [None]
  - ABDOMINAL WALL INFECTION [None]
  - CHOLELITHIASIS [None]
  - DEPRESSION [None]
  - ECCHYMOSIS [None]
  - ELECTROCARDIOGRAM ST-T SEGMENT ABNORMAL [None]
  - INCISION SITE COMPLICATION [None]
  - INDURATION [None]
  - NOSOCOMIAL INFECTION [None]
  - PANCYTOPENIA [None]
  - PNEUMONIA [None]
  - PURULENT DISCHARGE [None]
  - PYREXIA [None]
  - RASH PAPULAR [None]
  - SOFT TISSUE DISORDER [None]
  - STAPHYLOCOCCAL INFECTION [None]
  - SUBCUTANEOUS NODULE [None]
  - UROSEPSIS [None]
